FAERS Safety Report 5358575-4 (Version None)
Quarter: 2007Q2

REPORT INFORMATION
  Report Type: 
  Country: None (occurrence: None)
  Receive Date: 20070615
  Receipt Date: 20070606
  Transmission Date: 20071010
  Serious: Yes (Hospitalization)
  Sender: FDA-Public Use
  Company Number: US-JNJFOC-20070601899

PATIENT
  Sex: Female
  Weight: 77.11 kg

DRUGS (10)
  1. FENTANYL TRANSDERMAL SYSTEM [Suspect]
     Indication: SPINAL FUSION SURGERY
     Route: 062
  2. DURAGESIC-100 [Suspect]
     Route: 062
  3. DURAGESIC-100 [Suspect]
     Route: 062
  4. DURAGESIC-100 [Suspect]
     Indication: SPINAL FUSION SURGERY
     Route: 062
  5. SOMA [Concomitant]
     Indication: MUSCLE SPASMS
     Route: 048
  6. VALIUM [Concomitant]
     Route: 048
  7. ADALAT CA [Concomitant]
     Route: 048
  8. ZOLOFT [Concomitant]
     Route: 048
  9. ASPIRIN [Concomitant]
     Route: 048
  10. FENTANYL [Concomitant]
     Indication: PAIN
     Route: 048

REACTIONS (8)
  - BLOOD PRESSURE FLUCTUATION [None]
  - BRACHIAL PLEXUS INJURY [None]
  - HOSPITALISATION [None]
  - INSOMNIA [None]
  - INTERVERTEBRAL DISC PROTRUSION [None]
  - PAIN [None]
  - PRURITUS GENERALISED [None]
  - WRONG TECHNIQUE IN DRUG USAGE PROCESS [None]
